FAERS Safety Report 5104921-6 (Version None)
Quarter: 2006Q3

REPORT INFORMATION
  Report Type: 
  Country: None (occurrence: None)
  Receive Date: 20060914
  Receipt Date: 20060823
  Transmission Date: 20061208
  Serious: Yes (Hospitalization)
  Sender: FDA-Public Use
  Company Number: GB-PURDUE-DEU_2006_0002432

PATIENT
  Age: 76 Year
  Sex: Female
  Weight: 95 kg

DRUGS (15)
  1. OXY/NALOXONE VS OXY/PLACEBO CR TAB [Suspect]
     Indication: PAIN
     Dosage: 15 MG, BID
     Route: 048
     Dates: start: 20060517
  2. DOSULEPIN [Concomitant]
  3. SALBUTAMOL W/IPRATROPIUM [Concomitant]
  4. FLUTICASONE PROPIONATE [Concomitant]
  5. SALMETEROL [Concomitant]
  6. ASASANTIN [Concomitant]
  7. SIMVASTATIN [Concomitant]
  8. UNIPHYLLIN CONTINUS [Concomitant]
  9. SECURON [Concomitant]
  10. PARACETAMOL [Concomitant]
  11. RANITIDINE [Concomitant]
  12. FYBOGEL [Concomitant]
  13. FUROSEMIDE [Concomitant]
  14. PERINDOPRIL ERBUMINE [Concomitant]
  15. OXYCODONE HYDROCHLORIDE IR CAP 5 MG (STUDY) [Suspect]
     Indication: PAIN
     Route: 048
     Dates: start: 20060605

REACTIONS (1)
  - CELLULITIS [None]
